FAERS Safety Report 22087051 (Version 1)
Quarter: 2023Q1

REPORT INFORMATION
  Report Type: Spontaneous
  Country: US (occurrence: US)
  Receive Date: 20230313
  Receipt Date: 20230313
  Transmission Date: 20230417
  Serious: Yes (Death, Other)
  Sender: FDA-Public Use
  Company Number: US-JNJFOC-20230326007

PATIENT

DRUGS (2)
  1. ACETAMINOPHEN [Suspect]
     Active Substance: ACETAMINOPHEN
     Indication: Product used for unknown indication
     Route: 065
  2. POSACONAZOLE [Suspect]
     Active Substance: POSACONAZOLE
     Indication: Product used for unknown indication
     Route: 065

REACTIONS (21)
  - Hepatotoxicity [Fatal]
  - Hepatocellular injury [Fatal]
  - Cholestasis [Fatal]
  - Hepatic failure [Fatal]
  - Drug-induced liver injury [Fatal]
  - Hepatitis [Fatal]
  - Liver injury [Fatal]
  - Cholecystitis [Fatal]
  - Hepatic necrosis [Fatal]
  - Hepatitis cholestatic [Fatal]
  - Hyperbilirubinaemia [Fatal]
  - Hepatomegaly [Fatal]
  - Hepatosplenomegaly [Fatal]
  - Gallbladder disorder [Fatal]
  - Hepatic lesion [Fatal]
  - Hepatic function abnormal [Fatal]
  - Jaundice [Fatal]
  - Liver disorder [Fatal]
  - Cholelithiasis [Fatal]
  - Venoocclusive liver disease [Fatal]
  - Hypertransaminasaemia [Fatal]
